FAERS Safety Report 14600046 (Version 1)
Quarter: 2018Q1

REPORT INFORMATION
  Report Type: Spontaneous
  Country: KR (occurrence: KR)
  Receive Date: 20180305
  Receipt Date: 20180305
  Transmission Date: 20180509
  Serious: Yes (Other)
  Sender: FDA-Public Use
  Company Number: KR-ASTRAZENECA-2018SE26619

PATIENT
  Age: 74 Year
  Sex: Male

DRUGS (7)
  1. ALDACTONE [Concomitant]
     Active Substance: SPIRONOLACTONE
     Dosage: 1.0DF UNKNOWN
  2. LASIX [Concomitant]
     Active Substance: FUROSEMIDE
     Dosage: 1.0DF UNKNOWN
  3. BRILINTA [Suspect]
     Active Substance: TICAGRELOR
     Dosage: UNKNOWN DOSE
     Route: 048
  4. ASPIRIN. [Concomitant]
     Active Substance: ASPIRIN
  5. ISOTRIL CR [Concomitant]
     Dosage: 1.0DF UNKNOWN
  6. ACERTIL [Concomitant]
     Active Substance: PERINDOPRIL ARGININE
     Dosage: 2.0MG UNKNOWN
  7. DILATREND [Concomitant]
     Active Substance: CARVEDILOL

REACTIONS (2)
  - Cardiac arrest [Unknown]
  - Bradycardia [Unknown]
